FAERS Safety Report 20082691 (Version 1)
Quarter: 2021Q4

REPORT INFORMATION
  Report Type: Spontaneous
  Country: DE (occurrence: DE)
  Receive Date: 20211117
  Receipt Date: 20211117
  Transmission Date: 20220303
  Serious: Yes (Hospitalization)
  Sender: FDA-Public Use
  Company Number: DE-ADRED-07243-03

PATIENT
  Age: 87 Year
  Sex: Female
  Weight: 66 kg

DRUGS (13)
  1. APIXABAN [Suspect]
     Active Substance: APIXABAN
     Indication: Product used for unknown indication
     Dosage: UNK (2.5 MG, 1-0-1-0)
  2. METAMIZOL                          /06276701/ [Concomitant]
     Dosage: UNK (500 MG, 1-1-1-1)
  3. ALENDRONIC ACID [Concomitant]
     Active Substance: ALENDRONIC ACID
     Dosage: UNK (70 MG, SCHEMA)
  4. POLYETHYLENE GLYCOLS [Concomitant]
     Active Substance: POLYETHYLENE GLYCOLS
     Dosage: UNK (1-0-0-0)
  5. BISOPROLOL [Concomitant]
     Active Substance: BISOPROLOL
     Dosage: UNK (5 MG, 1-0-1-0)
  6. FENTANYL [Concomitant]
     Active Substance: FENTANYL
     Dosage: UNK (25 ?G, SCHEMA)
  7. KALIUM                             /00031401/ [Concomitant]
     Dosage: UNK (1-0-0-0)
  8. SIMVASTATIN [Concomitant]
     Active Substance: SIMVASTATIN
     Dosage: UNK (20 MG, 0-0-1-0)
  9. RAMIPRIL [Concomitant]
     Active Substance: RAMIPRIL
     Dosage: UNK (5 MG, 1-0-1.5-0)
  10. SPIRONOLACTONE [Concomitant]
     Active Substance: SPIRONOLACTONE
     Dosage: UNK (50 MG, 1-0-0-0)
  11. COLECALCIFEROL W/STRONTIUM RANELATE [Concomitant]
     Dosage: UNK (20000 IE, SCHEMA)
  12. XIPAMIDE [Concomitant]
     Active Substance: XIPAMIDE
     Dosage: UNK (20 MG, 0-1-0-0)
  13. MIRTAZAPINE [Concomitant]
     Active Substance: MIRTAZAPINE
     Dosage: UNK (7.5 MG, 0-0-0.5-0)

REACTIONS (5)
  - Hyperkalaemia [Unknown]
  - General physical health deterioration [Unknown]
  - Renal impairment [Unknown]
  - Anaemia [Unknown]
  - Spontaneous haemorrhage [Unknown]
